FAERS Safety Report 8392331-8 (Version None)
Quarter: 2012Q2

REPORT INFORMATION
  Report Type: 
  Country: None (occurrence: None)
  Receive Date: 20120529
  Receipt Date: 20120514
  Transmission Date: 20120825
  Serious: Yes (Life-Threatening, Other)
  Sender: FDA-Public Use
  Company Number: IL-ROCHE-229584

PATIENT
  Age: 6 Year
  Sex: Male

DRUGS (1)
  1. ROCEPHIN [Suspect]
     Indication: SICKLE CELL ANAEMIA WITH CRISIS
     Route: 042

REACTIONS (17)
  - ANAEMIA [None]
  - ABDOMINAL PAIN [None]
  - PROTHROMBIN TIME PROLONGED [None]
  - INTRAVASCULAR HAEMOLYSIS [None]
  - PALLOR [None]
  - TACHYCARDIA [None]
  - BLOOD LACTATE DEHYDROGENASE INCREASED [None]
  - HEPATOSPLENOMEGALY [None]
  - ACTIVATED PARTIAL THROMBOPLASTIN TIME PROLONGED [None]
  - ALANINE AMINOTRANSFERASE INCREASED [None]
  - ASPARTATE AMINOTRANSFERASE INCREASED [None]
  - HAEMOGLOBINURIA [None]
  - GAMMA-GLUTAMYLTRANSFERASE INCREASED [None]
  - COOMBS DIRECT TEST POSITIVE [None]
  - BACK PAIN [None]
  - JAUNDICE [None]
  - THROMBOCYTOPENIA [None]
